FAERS Safety Report 4854479-1 (Version None)
Quarter: 2005Q4

REPORT INFORMATION
  Report Type: 
  Country: None (occurrence: None)
  Receive Date: 20051215
  Receipt Date: 20051206
  Transmission Date: 20060501
  Serious: Yes (Death)
  Sender: FDA-Public Use
  Company Number: GB-BRISTOL-MYERS SQUIBB COMPANY-13206503

PATIENT

DRUGS (9)
  1. DIDANOSINE [Suspect]
     Indication: HIV INFECTION
  2. STAVUDINE [Suspect]
     Indication: HIV INFECTION
  3. NELFINAVIR [Suspect]
     Indication: HIV INFECTION
  4. CYCLOPHOSPHAMIDE [Concomitant]
     Route: 042
  5. DOXORUBICIN [Concomitant]
     Route: 042
  6. ETOPOSIDE [Concomitant]
     Route: 042
  7. COTRIM [Concomitant]
  8. AZITHROMYCIN [Concomitant]
  9. FILGRASTIM [Concomitant]
     Route: 058

REACTIONS (1)
  - NEUTROPENIC SEPSIS [None]
